FAERS Safety Report 6428647-1 (Version None)
Quarter: 2009Q4

REPORT INFORMATION
  Report Type: 
  Country: None (occurrence: None)
  Receive Date: 20091104
  Receipt Date: 20091104
  Transmission Date: 20100525
  Serious: Yes (Life-Threatening, Hospitalization)
  Sender: FDA-Public Use
  Company Number: None

PATIENT
  Age: 58 Year
  Sex: Male
  Weight: 71.9 kg

DRUGS (1)
  1. LITHIUM CARBONATE [Suspect]
     Indication: MANIA
     Dosage: 900 MG EVERY DAY PO
     Route: 048
     Dates: start: 20060412, end: 20091020

REACTIONS (5)
  - BRADYCARDIA [None]
  - COUGH [None]
  - DIARRHOEA [None]
  - RENAL FAILURE ACUTE [None]
  - WHEEZING [None]
